FAERS Safety Report 6112845-0 (Version None)
Quarter: 2009Q1

REPORT INFORMATION
  Report Type: 
  Country: None (occurrence: None)
  Receive Date: 20090312
  Receipt Date: 20090209
  Transmission Date: 20090719
  Serious: No
  Sender: FDA-Public Use
  Company Number: US-BAYER-200840859NA

PATIENT
  Age: 53 Year
  Sex: Male

DRUGS (11)
  1. LEVITRA [Suspect]
     Indication: ERECTILE DYSFUNCTION
     Dosage: UNIT DOSE: 10 MG
     Route: 048
  2. LEVITRA [Suspect]
     Dosage: UNIT DOSE: 10 MG
     Route: 048
     Dates: start: 20080301
  3. PLAVIX [Concomitant]
     Indication: ARTERIAL OCCLUSIVE DISEASE
     Dosage: TOTAL DAILY DOSE: 35 MG
  4. ASPIRIN [Concomitant]
  5. PREVACID [Concomitant]
     Indication: GASTROOESOPHAGEAL REFLUX DISEASE
     Dosage: TOTAL DAILY DOSE: 30 MG
  6. LIPITOR [Concomitant]
     Dosage: TOTAL DAILY DOSE: 20 MG
  7. VASERETIC [Concomitant]
  8. NORVASC [Concomitant]
     Indication: HYPERTENSION
     Dosage: TOTAL DAILY DOSE: 10 MG  UNIT DOSE: 5 MG
  9. ATENOLOL [Concomitant]
     Dosage: TOTAL DAILY DOSE: 50 MG
  10. VASOTEC [Concomitant]
     Dosage: TOTAL DAILY DOSE: 20 MG
  11. GLUCOPHAGE [Concomitant]
     Indication: TYPE 2 DIABETES MELLITUS
     Dosage: UNIT DOSE: 500 MG

REACTIONS (4)
  - ERECTILE DYSFUNCTION [None]
  - FLUSHING [None]
  - NASAL CONGESTION [None]
  - NAUSEA [None]
